FAERS Safety Report 4320842-0 (Version None)
Quarter: 2004Q1

REPORT INFORMATION
  Report Type: 
  Country: None (occurrence: None)
  Receive Date: 20040322
  Receipt Date: 20040312
  Transmission Date: 20041129
  Serious: Yes (Hospitalization)
  Sender: FDA-Public Use
  Company Number: PHRM2004FR01166

PATIENT
  Age: 29 Year
  Sex: Female

DRUGS (5)
  1. SYNTOCINON [Suspect]
     Route: 042
     Dates: start: 20030731, end: 20030731
  2. MARCAINE [Suspect]
     Indication: SPINAL ANAESTHESIA
     Dates: start: 20030731, end: 20030731
  3. SUFENTA [Suspect]
     Dates: start: 20030731, end: 20030731
  4. MORPHINE [Suspect]
     Dates: start: 20030731, end: 20030731
  5. CEFAZOLIN [Suspect]
     Dates: start: 20030731, end: 20030731

REACTIONS (2)
  - ERYTHEMA [None]
  - HYPOTENSION [None]
